FAERS Safety Report 13055791 (Version 2)
Quarter: 2017Q1

REPORT INFORMATION
  Report Type: Report from Study
  Country: CA (occurrence: CA)
  Receive Date: 20161222
  Receipt Date: 20170215
  Transmission Date: 20170428
  Serious: Yes (Hospitalization)
  Sender: FDA-Public Use
  Company Number: CA-JNJFOC-20161212681

PATIENT
  Age: 60 Year
  Sex: Female
  Weight: 106 kg

DRUGS (54)
  1. CANAGLIFLOZIN [Suspect]
     Active Substance: CANAGLIFLOZIN
     Indication: TYPE 2 DIABETES MELLITUS
     Route: 048
     Dates: start: 20101220, end: 20161115
  2. HYDROMORPH CONTIN [Concomitant]
     Active Substance: HYDROMORPHONE
     Indication: FIBROMYALGIA
     Route: 048
  3. FUROSEMIDE. [Concomitant]
     Active Substance: FUROSEMIDE
     Route: 048
  4. RASILEZ [Concomitant]
     Active Substance: ALISKIREN
     Indication: HYPERTENSION
     Route: 048
  5. MINOCIN [Concomitant]
     Active Substance: MINOCYCLINE HYDROCHLORIDE
     Indication: ADVERSE EVENT
     Route: 048
  6. QUININE [Concomitant]
     Active Substance: QUININE
     Route: 048
  7. ESTRACE [Concomitant]
     Active Substance: ESTRADIOL
     Indication: HOT FLUSH
     Route: 048
  8. DILAUDID [Concomitant]
     Active Substance: HYDROMORPHONE HYDROCHLORIDE
     Indication: FIBROMYALGIA
     Route: 048
  9. CRESTOR [Concomitant]
     Active Substance: ROSUVASTATIN CALCIUM
     Indication: HYPERCHOLESTEROLAEMIA
     Route: 048
  10. AVAMYS [Concomitant]
     Active Substance: FLUTICASONE FUROATE
     Indication: NASAL DRYNESS
     Route: 045
  11. FUCIDIN [Concomitant]
     Active Substance: FUSIDIC ACID
     Route: 061
  12. CLINDAMYCIN. [Concomitant]
     Active Substance: CLINDAMYCIN
     Indication: EAR INFECTION
     Route: 048
  13. LECTOPAM [Concomitant]
     Active Substance: BROMAZEPAM
     Indication: INSOMNIA
     Route: 048
  14. FERROUS SULFATE. [Concomitant]
     Active Substance: FERROUS SULFATE
     Route: 048
  15. ALDACTONE [Concomitant]
     Active Substance: SPIRONOLACTONE
     Indication: OEDEMA PERIPHERAL
     Route: 048
  16. ASAPHEN [Concomitant]
     Active Substance: ASPIRIN
     Indication: PROPHYLAXIS
     Route: 048
  17. COVERSYL [Concomitant]
     Active Substance: PERINDOPRIL
     Indication: HYPERTENSION
     Dosage: DOSE: 4.1-2.5 MG
     Route: 048
  18. SITAGLIPTIN [Concomitant]
     Active Substance: SITAGLIPTIN
     Route: 065
     Dates: start: 20160217
  19. ACETAMINOPHEN. [Concomitant]
     Active Substance: ACETAMINOPHEN
     Indication: FIBROMYALGIA
     Route: 048
  20. PLAVIX [Concomitant]
     Active Substance: CLOPIDOGREL BISULFATE
     Indication: PROPHYLAXIS
     Route: 048
  21. DIFLUCAN [Concomitant]
     Active Substance: FLUCONAZOLE
     Indication: ADVERSE EVENT
     Route: 048
  22. TERAZOL [Concomitant]
     Active Substance: TERCONAZOLE
     Indication: ADVERSE EVENT
     Route: 061
  23. BORIC ACID [Concomitant]
     Active Substance: BORIC ACID
     Indication: VAGINAL INFECTION
     Route: 065
  24. DESYREL [Concomitant]
     Active Substance: TRAZODONE HYDROCHLORIDE
     Indication: INSOMNIA
     Route: 048
  25. CANAGLIFLOZIN [Suspect]
     Active Substance: CANAGLIFLOZIN
     Route: 048
  26. LEVEMIR [Concomitant]
     Active Substance: INSULIN DETEMIR
     Dosage: DOSE: 86 (UNITS UNSPECIFIED)
     Route: 065
     Dates: start: 20110620
  27. ELAVIL [Concomitant]
     Active Substance: AMITRIPTYLINE HYDROCHLORIDE
     Indication: FIBROMYALGIA
     Route: 048
  28. DIOVAN [Concomitant]
     Active Substance: VALSARTAN
     Indication: HYPERTENSION
     Route: 048
  29. BENTYL [Concomitant]
     Active Substance: DICYCLOMINE HYDROCHLORIDE
     Indication: ABDOMINAL PAIN
     Route: 048
  30. MELATONIN [Concomitant]
     Active Substance: MELATONIN
     Indication: INSOMNIA
     Route: 048
  31. COLACE [Concomitant]
     Active Substance: DOCUSATE SODIUM
     Indication: CONSTIPATION
     Route: 048
  32. HUMULIN NOS [Concomitant]
     Active Substance: INSULIN HUMAN
     Dosage: DOSE: 16 (UNITS UNSPECIFIED)
     Route: 065
     Dates: start: 20110620
  33. ASAPHEN [Concomitant]
     Active Substance: ASPIRIN
     Indication: PROPHYLAXIS
     Route: 048
  34. FUROSEMIDE. [Concomitant]
     Active Substance: FUROSEMIDE
     Route: 048
  35. OXAZEPAM. [Concomitant]
     Active Substance: OXAZEPAM
     Indication: INSOMNIA
     Route: 048
  36. BISOPROLOL [Concomitant]
     Active Substance: BISOPROLOL
     Indication: HYPERTENSION
     Route: 048
  37. CANESTEN [Concomitant]
     Active Substance: CLOTRIMAZOLE
     Indication: ADVERSE EVENT
     Route: 061
  38. CELEXA [Concomitant]
     Active Substance: CITALOPRAM HYDROBROMIDE
     Route: 048
  39. MONISTAT [Concomitant]
     Active Substance: MICONAZOLE NITRATE
     Indication: ADVERSE EVENT
     Route: 061
  40. ATARAX [Concomitant]
     Active Substance: HYDROXYZINE HYDROCHLORIDE
     Indication: ADVERSE EVENT
     Route: 048
  41. COLACE [Concomitant]
     Active Substance: DOCUSATE SODIUM
     Indication: CONSTIPATION
     Route: 048
  42. CELEXA [Concomitant]
     Active Substance: CITALOPRAM HYDROBROMIDE
     Route: 048
  43. LEVAQUIN [Concomitant]
     Active Substance: LEVOFLOXACIN
     Indication: URINARY TRACT INFECTION
     Route: 048
  44. METFORMIN [Concomitant]
     Active Substance: METFORMIN HYDROCHLORIDE
     Route: 065
     Dates: start: 20160217
  45. FUROSEMIDE. [Concomitant]
     Active Substance: FUROSEMIDE
     Route: 048
  46. FUROSEMIDE. [Concomitant]
     Active Substance: FUROSEMIDE
     Route: 048
  47. NEXIUM [Concomitant]
     Active Substance: ESOMEPRAZOLE MAGNESIUM
     Route: 048
  48. CETIRIZINE [Concomitant]
     Active Substance: CETIRIZINE HYDROCHLORIDE
     Indication: HYPERSENSITIVITY
     Route: 048
  49. DIFLUCAN [Concomitant]
     Active Substance: FLUCONAZOLE
     Indication: ADVERSE EVENT
     Route: 048
  50. DIFLUCAN [Concomitant]
     Active Substance: FLUCONAZOLE
     Indication: ADVERSE EVENT
     Route: 048
  51. TERAZOL [Concomitant]
     Active Substance: TERCONAZOLE
     Indication: ADVERSE EVENT
     Route: 061
  52. BIAXIN [Concomitant]
     Active Substance: CLARITHROMYCIN
     Indication: ADVERSE EVENT
     Route: 048
  53. NITROFURANTOIN. [Concomitant]
     Active Substance: NITROFURANTOIN
     Indication: URINARY TRACT INFECTION
     Route: 048
  54. HABITROL [Concomitant]
     Active Substance: NICOTINE
     Indication: TOBACCO ABUSE
     Route: 061

REACTIONS (1)
  - Cardiac failure [Recovered/Resolved]

NARRATIVE: CASE EVENT DATE: 20161129
